FAERS Safety Report 5846810-5 (Version None)
Quarter: 2008Q3

REPORT INFORMATION
  Report Type: 
  Country: None (occurrence: None)
  Receive Date: 20080815
  Receipt Date: 20080801
  Transmission Date: 20090109
  Serious: Yes (Other)
  Sender: FDA-Public Use
  Company Number: JP-GENENTECH-256746

PATIENT
  Sex: Male

DRUGS (6)
  1. BEVACIZUMAB [Suspect]
     Indication: RECTAL CANCER
     Dosage: 10 MG/KG, QD
     Route: 041
     Dates: start: 20070724, end: 20070925
  2. OXALIPLATIN [Suspect]
     Indication: RECTAL CANCER
     Dosage: UNK, UNK
     Route: 041
     Dates: start: 20070724, end: 20070925
  3. FLUOROURACIL [Concomitant]
     Indication: RECTAL CANCER
     Dosage: UNK, UNK
     Dates: start: 20070724, end: 20070808
  4. ISOVORIN [Concomitant]
     Indication: RECTAL CANCER
     Dosage: UNK, UNK
     Dates: start: 20070724, end: 20070808
  5. LOXONIN [Concomitant]
     Indication: DRUG USE FOR UNKNOWN INDICATION
     Dosage: UNK
     Dates: start: 20061225, end: 20070925
  6. GRANISETRON HCL [Concomitant]
     Indication: DRUG USE FOR UNKNOWN INDICATION
     Dosage: UNK
     Dates: start: 20070724, end: 20070925

REACTIONS (3)
  - ANAPHYLACTIC SHOCK [None]
  - HYPERTENSION [None]
  - PELVIC ABSCESS [None]
